FAERS Safety Report 25763326 (Version 1)
Quarter: 2025Q3

REPORT INFORMATION
  Report Type: Spontaneous
  Country: US (occurrence: US)
  Receive Date: 20250905
  Receipt Date: 20250905
  Transmission Date: 20251021
  Serious: No
  Sender: PADAGIS
  Company Number: US-PADAGIS-2025PAD01039

PATIENT

DRUGS (2)
  1. AMMONIUM LACTATE [Suspect]
     Active Substance: AMMONIUM LACTATE
     Indication: Skin reaction
     Route: 065
     Dates: start: 20250730
  2. AMMONIUM LACTATE [Suspect]
     Active Substance: AMMONIUM LACTATE
     Route: 065

REACTIONS (2)
  - Rash [Recovering/Resolving]
  - Drug ineffective [Unknown]
